FAERS Safety Report 9982046 (Version 1)
Quarter: 2014Q1

REPORT INFORMATION
  Report Type: Spontaneous
  Country: US (occurrence: None)
  Receive Date: 20140306
  Receipt Date: 20140306
  Transmission Date: 20141002
  Serious: Yes (Hospitalization)
  Sender: FDA-Public Use
  Company Number: None

PATIENT
  Age: 44 Year
  Sex: Female
  Weight: 115.4 kg

DRUGS (2)
  1. SOFOSBUVIR [Suspect]
     Indication: HEPATITIS C
     Route: 048
     Dates: start: 20140108, end: 20140210
  2. RIBAPACK [Suspect]
     Dosage: 1200 MG 600 MG Q AM 600 MG QPM
     Route: 048

REACTIONS (3)
  - Condition aggravated [None]
  - Pyoderma gangrenosum [None]
  - Cellulitis [None]
